FAERS Safety Report 9015320 (Version 1)
Quarter: 2013Q1

REPORT INFORMATION
  Report Type: Spontaneous
  Country: US (occurrence: None)
  Receive Date: 20130109
  Receipt Date: 20130109
  Transmission Date: 20140127
  Serious: Yes (Life-Threatening, Hospitalization)
  Sender: FDA-Public Use
  Company Number: None

PATIENT
  Age: 63 Year
  Sex: Female
  Weight: 80.74 kg

DRUGS (1)
  1. CEPACOL SORE THROAT AND COUGH [Suspect]
     Dosage: BENZOCAINE 7.5 MG  DEXTROMETHORPHAN HBR 5MG
     Dates: start: 20121109

REACTIONS (6)
  - Hypoaesthesia [None]
  - Face oedema [None]
  - Oedema mouth [None]
  - Lip oedema [None]
  - Pharyngeal oedema [None]
  - Dyspnoea [None]
